FAERS Safety Report 24136645 (Version 2)
Quarter: 2025Q1

REPORT INFORMATION
  Report Type: Spontaneous
  Country: ES (occurrence: ES)
  Receive Date: 20240725
  Receipt Date: 20250212
  Transmission Date: 20250408
  Serious: Yes (Life-Threatening, Hospitalization, Other)
  Sender: PFIZER
  Company Number: ES-Accord-435790

PATIENT
  Age: 67 Year
  Sex: Male
  Weight: 65.5 kg

DRUGS (5)
  1. CARBOPLATIN [Suspect]
     Active Substance: CARBOPLATIN
     Indication: Small cell lung cancer limited stage
     Dosage: EVERY 3 WEEKS
     Dates: start: 20240515, end: 20240515
  2. ETOPOSIDE [Concomitant]
     Active Substance: ETOPOSIDE
     Indication: Small cell lung cancer limited stage
     Dosage: EVERY 3 WEEKS
     Dates: start: 20240223, end: 20240517
  3. CISPLATIN [Concomitant]
     Active Substance: CISPLATIN
     Indication: Small cell lung cancer
     Dosage: 135.75 MG, EVERY 3 WEEKS
     Dates: start: 20240223, end: 20240409
  4. OMEPRAZOLE [Concomitant]
     Active Substance: OMEPRAZOLE
     Indication: Gastrooesophageal reflux disease
     Dosage: 20 MG, 1X/DAY
     Route: 048
     Dates: start: 20130521
  5. FENTANYL [Concomitant]
     Active Substance: FENTANYL
     Indication: Oesophagitis
     Dates: start: 20240522

REACTIONS (1)
  - Respiratory tract infection [Recovered/Resolved]

NARRATIVE: CASE EVENT DATE: 20240628
